FAERS Safety Report 5295849-X (Version None)
Quarter: 2007Q2

REPORT INFORMATION
  Report Type: 
  Country: None (occurrence: None)
  Receive Date: 20070413
  Receipt Date: 20070404
  Transmission Date: 20071010
  Serious: Yes (Hospitalization)
  Sender: FDA-Public Use
  Company Number: US-BAYER-200711070BWH

PATIENT
  Age: 71 Year
  Sex: Female
  Weight: 59 kg

DRUGS (6)
  1. SORAFENIB [Suspect]
     Indication: NON-SMALL CELL LUNG CANCER METASTATIC
     Dosage: TOTAL DAILY DOSE: 800 MG  UNIT DOSE: 200 MG
     Route: 048
     Dates: start: 20070315, end: 20070326
  2. NORVASC [Concomitant]
     Route: 048
  3. LEXAPRO [Concomitant]
     Route: 048
  4. NEXIUM [Concomitant]
     Route: 048
  5. TOPROL-XL [Concomitant]
     Route: 048
  6. VITAMIN A, C, E (ICAPS) [Concomitant]
     Route: 048

REACTIONS (2)
  - ATRIAL FIBRILLATION [None]
  - NON-CARDIAC CHEST PAIN [None]
